FAERS Safety Report 18035548 (Version 1)
Quarter: 2020Q3

REPORT INFORMATION
  Report Type: Spontaneous
  Country: US (occurrence: US)
  Receive Date: 20200717
  Receipt Date: 20200717
  Transmission Date: 20201103
  Serious: Yes (Hospitalization, Other)
  Sender: FDA-Public Use
  Company Number: US-AUROBINDO-AUR-APL-2012-01539

PATIENT
  Age: 34 Year
  Sex: Male

DRUGS (1)
  1. CARISOPRODOL TABLETS [Suspect]
     Active Substance: CARISOPRODOL
     Indication: PRODUCT USED FOR UNKNOWN INDICATION
     Dosage: UNK
     Route: 042

REACTIONS (5)
  - Dyspnoea at rest [Recovering/Resolving]
  - Wrong technique in product usage process [Unknown]
  - Respiratory distress [Recovering/Resolving]
  - Pulmonary embolism [Recovering/Resolving]
  - Incorrect route of product administration [Unknown]
